FAERS Safety Report 24534731 (Version 1)
Quarter: 2024Q4

REPORT INFORMATION
  Report Type: Spontaneous
  Country: US (occurrence: US)
  Receive Date: 20241022
  Receipt Date: 20241022
  Transmission Date: 20250115
  Serious: No
  Sender: EPIC PHARM
  Company Number: US-EPICPHARMA-US-2024EPCSPO01286

PATIENT
  Age: 67 Year
  Sex: Male
  Weight: 173 kg

DRUGS (5)
  1. RIFAMPIN [Suspect]
     Active Substance: RIFAMPIN
     Indication: Product used for unknown indication
     Route: 065
     Dates: start: 20221102
  2. CLOFAZIMINE [Concomitant]
     Active Substance: CLOFAZIMINE
     Indication: Atypical mycobacterial infection
     Route: 048
     Dates: start: 20231221
  3. AZITHROMYCIN [Concomitant]
     Active Substance: AZITHROMYCIN
     Indication: Product used for unknown indication
     Route: 065
     Dates: start: 20221102
  4. ETHAMBUTOL [Concomitant]
     Active Substance: ETHAMBUTOL HYDROCHLORIDE
     Indication: Product used for unknown indication
     Route: 065
     Dates: start: 20221102
  5. AMIKACIN [Concomitant]
     Active Substance: AMIKACIN
     Indication: Product used for unknown indication
     Route: 065
     Dates: start: 20240513

REACTIONS (1)
  - Blood creatinine increased [Not Recovered/Not Resolved]

NARRATIVE: CASE EVENT DATE: 20240212
